FAERS Safety Report 23363432 (Version 1)
Quarter: 2024Q1

REPORT INFORMATION
  Report Type: Spontaneous
  Country: US (occurrence: US)
  Receive Date: 20240103
  Receipt Date: 20240103
  Transmission Date: 20240410
  Serious: No
  Sender: FDA-Public Use
  Company Number: US-Eisai Medical Research-EC-2023-135634

PATIENT
  Age: 69 Year
  Sex: Female
  Weight: 53.63 kg

DRUGS (1)
  1. LEQEMBI [Suspect]
     Active Substance: LECANEMAB-IRMB
     Indication: Dementia Alzheimer^s type
     Dosage: DOSE UNKNOWN
     Route: 042
     Dates: start: 20230222

REACTIONS (2)
  - Headache [Recovered/Resolved]
  - Rash pruritic [Not Recovered/Not Resolved]

NARRATIVE: CASE EVENT DATE: 20230222
